FAERS Safety Report 4348612-8 (Version None)
Quarter: 2004Q2

REPORT INFORMATION
  Report Type: 
  Country: None (occurrence: None)
  Receive Date: 20040423
  Receipt Date: 20040416
  Transmission Date: 20050107
  Serious: Yes (Death)
  Sender: FDA-Public Use
  Company Number: USA-2003-0011296

PATIENT
  Age: 23 Year
  Sex: Male
  Weight: 142 kg

DRUGS (4)
  1. OXYCODONE HCL [Suspect]
  2. ETHANOL (ETHANOL) [Suspect]
  3. ALPRAZOLAM [Suspect]
  4. CANNABIS (CANNABIS) [Suspect]

REACTIONS (6)
  - DRUG SCREEN POSITIVE [None]
  - HEPATIC STEATOSIS [None]
  - HYPERTROPHIC CARDIOMYOPATHY [None]
  - OBESITY [None]
  - PULMONARY OEDEMA [None]
  - TOXICOLOGIC TEST ABNORMAL [None]
